FAERS Safety Report 7828040-0 (Version None)
Quarter: 2011Q4

REPORT INFORMATION
  Report Type: 
  Country: None (occurrence: None)
  Receive Date: 20111020
  Receipt Date: 20111014
  Transmission Date: 20120403
  Serious: Yes (Hospitalization)
  Sender: FDA-Public Use
  Company Number: FR-GLAXOSMITHKLINE-B0651000A

PATIENT
  Sex: Male

DRUGS (2)
  1. SUMATRIPTAN SUCCINATE [Suspect]
     Indication: MIGRAINE WITH AURA
     Route: 048
     Dates: start: 20091001, end: 20100101
  2. IBRUPROFEN [Concomitant]
     Route: 065
     Dates: start: 20090915

REACTIONS (3)
  - CHOREA [None]
  - TORTICOLLIS [None]
  - AKATHISIA [None]
